FAERS Safety Report 5636785-6 (Version None)
Quarter: 2008Q1

REPORT INFORMATION
  Report Type: 
  Country: None (occurrence: None)
  Receive Date: 20080219
  Receipt Date: 20080219
  Transmission Date: 20080703
  Serious: No
  Sender: FDA-Public Use
  Company Number: None

PATIENT
  Age: 82 Year
  Sex: Male

DRUGS (1)
  1. ERTAPENEM [Suspect]
     Dosage: 1000MG EVERY DAY IV
     Route: 042
     Dates: start: 20070626, end: 20070627

REACTIONS (1)
  - MENTAL STATUS CHANGES [None]
